FAERS Safety Report 18906946 (Version 4)
Quarter: 2021Q4

REPORT INFORMATION
  Report Type: Report from Study
  Country: LB (occurrence: LB)
  Receive Date: 20210217
  Receipt Date: 20211229
  Transmission Date: 20220303
  Serious: Yes (Other)
  Sender: FDA-Public Use
  Company Number: NVSC2020LB207459

PATIENT
  Age: 32 Year
  Sex: Female
  Weight: 56 kg

DRUGS (7)
  1. COSENTYX [Suspect]
     Active Substance: SECUKINUMAB
     Indication: Psoriasis
     Dosage: 300 MG, QMO
     Route: 058
     Dates: start: 20181025, end: 20200623
  2. COSENTYX [Suspect]
     Active Substance: SECUKINUMAB
     Dosage: 300 MG, QMO
     Route: 058
     Dates: start: 202102
  3. VITAMINS [Concomitant]
     Active Substance: VITAMINS
     Indication: Foetal growth abnormality
     Dosage: UNK UNK, UNKNOWN
     Route: 048
     Dates: start: 20200720, end: 20201218
  4. CALTRATE [Concomitant]
     Active Substance: CALCIUM CARBONATE
     Indication: Foetal growth abnormality
     Dosage: UNK UNK, UNKNOWN
     Route: 048
     Dates: start: 20200720, end: 20201218
  5. IRON [Concomitant]
     Active Substance: IRON
     Indication: Product used for unknown indication
     Dosage: UNK UNK, UNKNOWN
     Route: 048
     Dates: start: 20200720, end: 20201218
  6. DYDROGESTERONE [Concomitant]
     Active Substance: DYDROGESTERONE
     Indication: Anembryonic gestation
     Dosage: UNK UNK, UNKNOWN
     Route: 048
     Dates: start: 20200720, end: 20201218
  7. BIOGEST [Concomitant]
     Indication: Anembryonic gestation
     Dosage: UNK UNK, UNKNOWN
     Route: 030
     Dates: start: 20200720, end: 20201218

REACTIONS (4)
  - Haemorrhage [Recovered/Resolved]
  - Normal newborn [Unknown]
  - Back pain [Recovered/Resolved]
  - Maternal exposure during pregnancy [Recovered/Resolved]

NARRATIVE: CASE EVENT DATE: 20200620
